FAERS Safety Report 22257763 (Version 1)
Quarter: 2023Q2

REPORT INFORMATION
  Report Type: Spontaneous
  Country: CN (occurrence: CN)
  Receive Date: 20230427
  Receipt Date: 20230427
  Transmission Date: 20230722
  Serious: Yes (Other)
  Sender: FDA-Public Use
  Company Number: CN-GLAXOSMITHKLINE-CNCH2023APC017494

PATIENT

DRUGS (2)
  1. DICLOFENAC SODIUM [Suspect]
     Active Substance: DICLOFENAC SODIUM
     Indication: Gout
     Dosage: 1 DF, QD
     Route: 048
     Dates: start: 20230402, end: 20230410
  2. CLOPIDOGREL BISULFATE [Suspect]
     Active Substance: CLOPIDOGREL BISULFATE
     Indication: Diabetic macroangiopathy
     Dosage: 75 MG, QD
     Route: 048
     Dates: start: 20230330, end: 20230410

REACTIONS (5)
  - Lower gastrointestinal haemorrhage [Recovering/Resolving]
  - Enterocolitis [Recovering/Resolving]
  - Colitis ulcerative [Recovering/Resolving]
  - Pyrexia [Recovering/Resolving]
  - Diarrhoea [Recovering/Resolving]

NARRATIVE: CASE EVENT DATE: 20230410
